FAERS Safety Report 4369273-8 (Version None)
Quarter: 2004Q2

REPORT INFORMATION
  Report Type: 
  Country: None (occurrence: None)
  Receive Date: 20040603
  Receipt Date: 20040402
  Transmission Date: 20050107
  Serious: No
  Sender: FDA-Public Use
  Company Number: US-GLAXOSMITHKLINE-A0505652A

PATIENT
  Age: 39 Year
  Sex: Male

DRUGS (5)
  1. AUGMENTIN [Suspect]
     Indication: INFECTION PROPHYLAXIS
     Dosage: 2TAB TWICE PER DAY
     Route: 048
     Dates: start: 20040331
  2. ALTERNATIVE THERAPY [Concomitant]
  3. MINERAL TAB [Concomitant]
  4. CALCIUM [Concomitant]
  5. MULTIVITAMIN [Concomitant]

REACTIONS (2)
  - DECREASED APPETITE [None]
  - DIARRHOEA [None]
